FAERS Safety Report 8866389 (Version 1)
Quarter: 2012Q4

REPORT INFORMATION
  Report Type: 
  Country: NL (occurrence: NL)
  Receive Date: 20121025
  Receipt Date: 20121025
  Transmission Date: 20130627
  Serious: Yes (Hospitalization, Other)
  Sender: FDA-Public Use
  Company Number: NL-PFIZER INC-2012262303

PATIENT
  Age: 75 Year
  Sex: Female

DRUGS (3)
  1. PAMIDRONATE DISODIUM [Suspect]
     Indication: OSTEOPOROSIS
     Dosage: 60 mg, every 3 months
     Route: 042
  2. ZOLEDRONIC ACID [Suspect]
     Dosage: 5 mg, UNK
  3. CALCIUM WITH VITAMIN D [Concomitant]
     Indication: OSTEOPOROSIS

REACTIONS (3)
  - Eating disorder [Unknown]
  - Osteonecrosis of jaw [Unknown]
  - Osteomyelitis [Unknown]
